FAERS Safety Report 10381834 (Version 4)
Quarter: 2015Q1

REPORT INFORMATION
  Report Type: Spontaneous
  Country: US (occurrence: US)
  Receive Date: 20140813
  Receipt Date: 20150112
  Transmission Date: 20150720
  Serious: Yes (Other)
  Sender: FDA-Public Use
  Company Number: US-GLAXOSMITHKLINE-A1050455A

PATIENT
  Age: 68 Year
  Sex: Male
  Weight: 85.71 kg

DRUGS (22)
  1. AZILECT [Concomitant]
     Active Substance: RASAGILINE MESYLATE
  2. FLUOCINONIDE CREAM [Concomitant]
     Active Substance: FLUOCINONIDE
  3. HYDROCODONE/APAP [Concomitant]
     Active Substance: ACETAMINOPHEN\HYDROCODONE
  4. CITALOPRAM [Concomitant]
     Active Substance: CITALOPRAM HYDROBROMIDE
  5. AVODART [Suspect]
     Active Substance: DUTASTERIDE
     Indication: BENIGN PROSTATIC HYPERPLASIA
     Dosage: 1 CAPSULE DAILY.
     Route: 048
     Dates: start: 20130916
  6. DICYCLOMINE [Concomitant]
     Active Substance: DICYCLOMINE HYDROCHLORIDE
  7. TAMSULOSIN [Concomitant]
     Active Substance: TAMSULOSIN
  8. SCHIFF MOVE FREE [Concomitant]
     Active Substance: CHONDROITIN SULFATE A\GLUCOSAMINE
  9. VITAMIN C [Concomitant]
     Active Substance: ASCORBIC ACID
  10. PRAMIPEXOLE [Concomitant]
     Active Substance: PRAMIPEXOLE
  11. CETIRIZINE [Concomitant]
     Active Substance: CETIRIZINE HYDROCHLORIDE
  12. MULTIVITAMIN [Concomitant]
     Active Substance: VITAMINS
  13. VITAMIN D3 [Concomitant]
     Active Substance: CHOLECALCIFEROL
  14. FISH OIL [Concomitant]
     Active Substance: FISH OIL
  15. AVODART [Suspect]
     Active Substance: DUTASTERIDE
     Dates: start: 20130916
  16. FINASTERIDE. [Suspect]
     Active Substance: FINASTERIDE
     Indication: BENIGN PROSTATIC HYPERPLASIA
     Dosage: 5MG DAILY
     Route: 065
     Dates: start: 201406
  17. SOTALOL. [Concomitant]
     Active Substance: SOTALOL
  18. WARFARIN [Concomitant]
     Active Substance: WARFARIN
  19. AMOXICILLIN. [Concomitant]
     Active Substance: AMOXICILLIN
  20. MAG-OX [Concomitant]
  21. ASPIRIN. [Concomitant]
     Active Substance: ASPIRIN
  22. PROBIOTIC [Concomitant]
     Active Substance: PROBIOTICS NOS

REACTIONS (13)
  - Pain [Recovering/Resolving]
  - Therapeutic response unexpected [Not Recovered/Not Resolved]
  - Headache [Not Recovered/Not Resolved]
  - Motor dysfunction [Not Recovered/Not Resolved]
  - Tremor [Recovering/Resolving]
  - Sleep disorder [Recovering/Resolving]
  - Orthostatic hypotension [Unknown]
  - Nocturia [Recovered/Resolved]
  - Parkinson^s disease [Recovering/Resolving]
  - Heart rate decreased [Unknown]
  - Groin pain [Unknown]
  - Hypotension [Unknown]
  - Blood pressure increased [Unknown]

NARRATIVE: CASE EVENT DATE: 201310
